FAERS Safety Report 4274096-4 (Version None)
Quarter: 2004Q1

REPORT INFORMATION
  Report Type: 
  Country: None (occurrence: None)
  Receive Date: 20040120
  Receipt Date: 20031128
  Transmission Date: 20041129
  Serious: Yes (Other)
  Sender: FDA-Public Use
  Company Number: CH-GLAXOSMITHKLINE-B0316580A

PATIENT
  Sex: Male

DRUGS (1)
  1. MALARONE [Suspect]
     Indication: MALARIA PROPHYLAXIS
     Route: 048
     Dates: start: 20031101, end: 20031125

REACTIONS (5)
  - ANAEMIA [None]
  - FOOD POISONING [None]
  - HYPERSENSITIVITY [None]
  - RASH [None]
  - URTICARIA [None]
